FAERS Safety Report 8014417-X (Version None)
Quarter: 2011Q4

REPORT INFORMATION
  Report Type: 
  Country: None (occurrence: None)
  Receive Date: 20111229
  Receipt Date: 20111222
  Transmission Date: 20120403
  Serious: Yes (Other)
  Sender: FDA-Public Use
  Company Number: PHEH2011US02571

PATIENT
  Sex: Female

DRUGS (1)
  1. GILENYA [Suspect]
     Indication: MULTIPLE SCLEROSIS
     Dosage: 0.5 MG, QD
     Route: 048
     Dates: start: 20110818, end: 20111221

REACTIONS (5)
  - HEART RATE DECREASED [None]
  - PAIN [None]
  - FATIGUE [None]
  - BLOOD PRESSURE DECREASED [None]
  - FEELING ABNORMAL [None]
